FAERS Safety Report 5095809-8 (Version None)
Quarter: 2006Q3

REPORT INFORMATION
  Report Type: 
  Country: None (occurrence: None)
  Receive Date: 20060905
  Receipt Date: 20060824
  Transmission Date: 20061208
  Serious: Yes (Hospitalization)
  Sender: FDA-Public Use
  Company Number: CN-JNJFOC-20060805477

PATIENT

DRUGS (1)
  1. SPORANOX IV [Suspect]
     Indication: FUNGAL INFECTION
     Route: 042

REACTIONS (2)
  - ANURIA [None]
  - OLIGURIA [None]
